FAERS Safety Report 11157305 (Version 1)
Quarter: 2015Q2

REPORT INFORMATION
  Report Type: Report from Study
  Country: NL (occurrence: NL)
  Receive Date: 20150603
  Receipt Date: 20150603
  Transmission Date: 20150821
  Serious: Yes (Death)
  Sender: FDA-Public Use
  Company Number: NL-AMGEN-NLDSL2015052980

PATIENT
  Age: 69 Year
  Sex: Male

DRUGS (2)
  1. ARANESP [Suspect]
     Active Substance: DARBEPOETIN ALFA
     Indication: ANAEMIA
     Dosage: 500 MCG/1.0ML, ONCE IN 3 WEEK
     Route: 058
     Dates: start: 20150420, end: 20150511
  2. NEULASTA [Suspect]
     Active Substance: PEGFILGRASTIM
     Indication: NEUTROPENIA
     Dosage: 10MG/0.6ML, ONCE IN 3 WEEKS
     Route: 058
     Dates: start: 20150516, end: 20150516

REACTIONS (1)
  - Death [Fatal]
